FAERS Safety Report 8343688-5 (Version None)
Quarter: 2012Q2

REPORT INFORMATION
  Report Type: 
  Country: None (occurrence: None)
  Receive Date: 20120508
  Receipt Date: 20120502
  Transmission Date: 20120825
  Serious: Yes (Hospitalization, Other)
  Sender: FDA-Public Use
  Company Number: US-BAYER-2011-107921

PATIENT
  Age: 25 Year
  Sex: Female
  Weight: 61 kg

DRUGS (5)
  1. PERCOCET [Concomitant]
     Indication: PAIN
     Dosage: 5-325, 1-2 EVERY 4-6 HOURS AS NEEDED
     Route: 048
     Dates: start: 20051002
  2. LEVAQUIN [Concomitant]
     Dosage: 500 MG, QD
     Dates: start: 20051004
  3. METRONIDAZOLE [Concomitant]
     Dosage: 500 MG, BID
     Route: 048
     Dates: start: 20051004
  4. YASMIN [Suspect]
     Indication: CONTRACEPTION
     Dosage: UNK
     Dates: start: 20040120, end: 20051001
  5. YASMIN [Suspect]
     Indication: MENORRHAGIA

REACTIONS (16)
  - SCAR [None]
  - CHOLECYSTECTOMY [None]
  - PANCREATITIS CHRONIC [None]
  - DEEP VEIN THROMBOSIS [None]
  - PAIN [None]
  - INJURY [None]
  - DYSPEPSIA [None]
  - DEPRESSION [None]
  - ANHEDONIA [None]
  - ABDOMINAL DISTENSION [None]
  - ANXIETY [None]
  - FOCAL NODULAR HYPERPLASIA [None]
  - PULMONARY EMBOLISM [None]
  - FLATULENCE [None]
  - CONSTIPATION [None]
  - DIARRHOEA [None]
